FAERS Safety Report 24042258 (Version 1)
Quarter: 2024Q3

REPORT INFORMATION
  Report Type: Spontaneous
  Country: PL (occurrence: PL)
  Receive Date: 20240702
  Receipt Date: 20240702
  Transmission Date: 20241017
  Serious: Yes (Other)
  Sender: CSL BEHRING
  Company Number: PL-TAKEDA-2024TUS053550

PATIENT
  Age: 28 Year
  Sex: Male

DRUGS (3)
  1. HUMAN IMMUNOGLOBULIN G [Suspect]
     Active Substance: HUMAN IMMUNOGLOBULIN G
     Indication: Immunodeficiency common variable
     Dosage: 300 MG/KG, QMT
     Route: 042
  2. HUMAN IMMUNOGLOBULIN G [Suspect]
     Active Substance: HUMAN IMMUNOGLOBULIN G
     Indication: Thrombocytopenia
  3. LAMIVUDINE [Concomitant]
     Active Substance: LAMIVUDINE
     Dosage: 300 MILLIGRAM, QD

REACTIONS (9)
  - Type III immune complex mediated reaction [Unknown]
  - Acute kidney injury [Unknown]
  - Coagulopathy [Unknown]
  - Serum sickness [Unknown]
  - Gianotti-Crosti syndrome [Unknown]
  - Vasculitis [Unknown]
  - Hepatitis B surface antibody positive [Unknown]
  - Off label use [Unknown]
  - Complement factor C4 decreased [Unknown]
